FAERS Safety Report 5609376-0 (Version None)
Quarter: 2008Q1

REPORT INFORMATION
  Report Type: 
  Country: None (occurrence: None)
  Receive Date: 20080131
  Receipt Date: 20080124
  Transmission Date: 20080703
  Serious: Yes (Death)
  Sender: FDA-Public Use
  Company Number: ES-ROCHE-542982

PATIENT
  Age: 73 Year
  Sex: Male
  Weight: 73 kg

DRUGS (6)
  1. CAPECITABINE [Suspect]
     Dosage: DAYS 1-14 OF A 21 DAY CYCLE.
     Route: 048
     Dates: start: 20080103, end: 20080110
  2. BEVACIZUMAB [Suspect]
     Dosage: DOSAGE FORM REPORTED AS INFUSION.
     Route: 042
     Dates: start: 20080103, end: 20080110
  3. OXALIPLATIN [Suspect]
     Dosage: DOSAGE FORM REPORTED AS INFUSION.
     Route: 042
     Dates: start: 20080103, end: 20080110
  4. ONDANSETRON [Concomitant]
     Dates: start: 20080103, end: 20080105
  5. DEXAMETHASONE TAB [Concomitant]
     Dates: start: 20080103, end: 20080105
  6. OMEPRAZOLE [Concomitant]
     Dates: start: 20080103, end: 20080110

REACTIONS (1)
  - DEATH [None]
